FAERS Safety Report 8968171 (Version 3)
Quarter: 2013Q1

REPORT INFORMATION
  Report Type: Spontaneous
  Country: US (occurrence: US)
  Receive Date: 20121218
  Receipt Date: 20130227
  Transmission Date: 20140127
  Serious: Yes (Other)
  Sender: FDA-Public Use
  Company Number: US-JNJFOC-20121205970

PATIENT
  Sex: Male
  Weight: 79.38 kg

DRUGS (2)
  1. ROGAINE FOR MEN EXTRA STRENGTH FOAM UNSCENTED [Suspect]
     Route: 061
  2. ROGAINE FOR MEN EXTRA STRENGTH FOAM UNSCENTED [Suspect]
     Indication: ALOPECIA
     Dosage: CAP FULL
     Route: 061
     Dates: start: 2012

REACTIONS (7)
  - Suicidal ideation [Not Recovered/Not Resolved]
  - Eye swelling [Unknown]
  - Skin disorder [Not Recovered/Not Resolved]
  - Bone disorder [Not Recovered/Not Resolved]
  - Product packaging issue [Unknown]
  - Overdose [Unknown]
  - Product quality issue [Unknown]
